FAERS Safety Report 9431954 (Version 1)
Quarter: 2013Q3

REPORT INFORMATION
  Report Type: Spontaneous
  Country: NL (occurrence: None)
  Receive Date: 20130726
  Receipt Date: 20130726
  Transmission Date: 20140515
  Serious: Yes (Other)
  Sender: FDA-Public Use
  Company Number: 2013-3076

PATIENT
  Sex: Male

DRUGS (1)
  1. SOMATULINE [Suspect]
     Indication: NEUROENDOCRINE TUMOUR
     Dosage: 120 MG (120 MG, 1 IN 4 WK), SUBCUTANEOUS
     Route: 058
     Dates: start: 20121108, end: 20130619

REACTIONS (4)
  - Nausea [None]
  - Diarrhoea [None]
  - Terminal state [None]
  - Hospice care [None]
